FAERS Safety Report 7727112-9 (Version None)
Quarter: 2011Q3

REPORT INFORMATION
  Report Type: 
  Country: None (occurrence: None)
  Receive Date: 20110902
  Receipt Date: 20110831
  Transmission Date: 20111222
  Serious: Yes (Death, Disabling)
  Sender: FDA-Public Use
  Company Number: JP-B.I. PHARMACEUTICALS,INC./RIDGEFIELD-2011-BP-20593NB

PATIENT
  Age: 84 Year
  Sex: Female
  Weight: 35 kg

DRUGS (4)
  1. CEFTAZIDIME [Suspect]
     Indication: RESPIRATORY FAILURE
  2. CEFTAZIDIME [Suspect]
     Indication: CARDIAC FAILURE
     Dosage: 2 G
     Route: 042
     Dates: start: 20101013, end: 20101019
  3. CEFTAZIDIME [Suspect]
     Indication: C-REACTIVE PROTEIN INCREASED
  4. MOBIC [Suspect]
     Route: 065
     Dates: start: 20101001, end: 20101001

REACTIONS (2)
  - PNEUMONIA CYTOMEGALOVIRAL [None]
  - TOXIC EPIDERMAL NECROLYSIS [None]
